FAERS Safety Report 9695324 (Version 1)
Quarter: 2013Q4

REPORT INFORMATION
  Report Type: Spontaneous
  Country: US (occurrence: None)
  Receive Date: 20131118
  Receipt Date: 20131118
  Transmission Date: 20140711
  Serious: Yes (Other)
  Sender: FDA-Public Use
  Company Number: None

PATIENT
  Age: 59 Year
  Sex: Male
  Weight: 90.72 kg

DRUGS (1)
  1. MIRVASO [Suspect]
     Indication: ROSACEA
     Dosage: SMALL AMOUNT TO FACE; ONCE DAILY; APPLIED TO A SUFACE, USUALLY THE SKIN
     Route: 061

REACTIONS (2)
  - Inflammation [None]
  - Skin disorder [None]
